FAERS Safety Report 9867946 (Version 1)
Quarter: 2014Q1

REPORT INFORMATION
  Report Type: Spontaneous
  Country: VE (occurrence: VE)
  Receive Date: 20140204
  Receipt Date: 20140204
  Transmission Date: 20141002
  Serious: Yes (Death)
  Sender: FDA-Public Use
  Company Number: VE-PFIZER INC-2014030376

PATIENT
  Sex: Male

DRUGS (1)
  1. CADUET [Suspect]
     Dosage: AMLODIPINE BESILATE 5 MG/ATORVASTATIN CALCIUM 10 MG

REACTIONS (1)
  - Death [Fatal]
